FAERS Safety Report 8816686 (Version 2)
Quarter: 2012Q4

REPORT INFORMATION
  Report Type: Spontaneous
  Country: US (occurrence: None)
  Receive Date: 20120928
  Receipt Date: 20121024
  Transmission Date: 20130627
  Serious: Yes (Hospitalization, Other)
  Sender: FDA-Public Use
  Company Number: AUR-APL-2012-04079

PATIENT
  Age: 62 Year
  Sex: Male

DRUGS (7)
  1. PIPERACILLIN / TAZOBACTAM [Suspect]
     Indication: GANGRENE
  2. VANCOMYCIN [Suspect]
  3. ASPIRIN (ACETYLSALICYLIC ACID) [Concomitant]
  4. GABAPENTIN (GABAPENTIN) [Concomitant]
  5. PAROXETINE [Concomitant]
  6. RANITIDINE (RANITIDINE) [Concomitant]
  7. TRAMADOL (TRAMADOL) [Concomitant]

REACTIONS (4)
  - Erythema [None]
  - Pyrexia [None]
  - Acute generalised exanthematous pustulosis [None]
  - Skin exfoliation [None]
